FAERS Safety Report 10594009 (Version 1)
Quarter: 2014Q4

REPORT INFORMATION
  Report Type: Spontaneous
  Country: HU (occurrence: HU)
  Receive Date: 20141119
  Receipt Date: 20141119
  Transmission Date: 20150529
  Serious: Yes (Hospitalization, Other)
  Sender: FDA-Public Use
  Company Number: HU-ROXANE LABORATORIES, INC.-2014-RO-01737RO

PATIENT
  Age: 55 Year
  Sex: Female

DRUGS (8)
  1. METOPROLOL [Concomitant]
     Active Substance: METOPROLOL
     Dosage: 200 MG
     Route: 065
  2. GLULISINE [Concomitant]
     Route: 065
  3. ALPRAZOLAM INTENSOL [ORAL SOLUTION (CONCENTRATE)] 1 MG/ML [Suspect]
     Active Substance: ALPRAZOLAM
     Dosage: 1 MG
     Route: 065
  4. ALPRAZOLAM INTENSOL [ORAL SOLUTION (CONCENTRATE)] 1 MG/ML [Suspect]
     Active Substance: ALPRAZOLAM
     Indication: PANIC DISORDER
     Route: 065
     Dates: start: 2004, end: 2013
  5. GLARGINE [Concomitant]
     Route: 065
  6. ALLOPURINOL. [Concomitant]
     Active Substance: ALLOPURINOL
     Dosage: 100 MG
     Route: 065
  7. ESOMEPRAZOLE [Concomitant]
     Active Substance: ESOMEPRAZOLE
     Dosage: 40 MG
     Route: 065
  8. LEVOTHYROXINE [Concomitant]
     Active Substance: LEVOTHYROXINE
     Dosage: 100 MCG
     Route: 065

REACTIONS (3)
  - Fatigue [Unknown]
  - Somnolence [Unknown]
  - Pseudophaeochromocytoma [Recovered/Resolved]

NARRATIVE: CASE EVENT DATE: 201401
